FAERS Safety Report 22391478 (Version 1)
Quarter: 2023Q2

REPORT INFORMATION
  Report Type: Report from Study
  Country: DE (occurrence: DE)
  Receive Date: 20230601
  Receipt Date: 20230601
  Transmission Date: 20230721
  Serious: Yes (Hospitalization, Other)
  Sender: FDA-Public Use
  Company Number: DE-SA-2023SA166096

PATIENT
  Age: 25 Year
  Sex: Female

DRUGS (4)
  1. DUPILUMAB [Suspect]
     Active Substance: DUPILUMAB
     Indication: Chronic rhinosinusitis with nasal polyps
     Dosage: 300 MG, QOW
     Route: 058
  2. DUPILUMAB [Suspect]
     Active Substance: DUPILUMAB
     Indication: Asthma
  3. CORTICOSTEROID NOS [Concomitant]
     Active Substance: CORTICOSTEROID NOS
     Indication: Chronic rhinosinusitis with nasal polyps
     Dosage: UNK
     Route: 045
  4. CORTICOSTEROID NOS [Concomitant]
     Active Substance: CORTICOSTEROID NOS
     Indication: Asthma

REACTIONS (9)
  - Hypereosinophilic syndrome [Unknown]
  - Dyspnoea [Unknown]
  - Abdominal rigidity [Unknown]
  - Pyrexia [Unknown]
  - Arthralgia [Unknown]
  - Pain in extremity [Unknown]
  - Myalgia [Unknown]
  - Cough [Unknown]
  - Eosinophilic granulomatosis with polyangiitis [Unknown]
